FAERS Safety Report 19416439 (Version 2)
Quarter: 2021Q3

REPORT INFORMATION
  Report Type: Spontaneous
  Country: JP (occurrence: JP)
  Receive Date: 20210615
  Receipt Date: 20210730
  Transmission Date: 20211014
  Serious: Yes (Hospitalization, Other)
  Sender: FDA-Public Use
  Company Number: JP-ASTELLAS-2020JP014079

PATIENT
  Age: 49 Year
  Sex: Female
  Weight: 54 kg

DRUGS (5)
  1. PREDNISOLONE. [Suspect]
     Active Substance: PREDNISOLONE
     Indication: MUSCULAR WEAKNESS
     Route: 048
     Dates: start: 20130313
  2. MESTINON [Concomitant]
     Active Substance: PYRIDOSTIGMINE BROMIDE
     Indication: MUSCULAR WEAKNESS
     Route: 048
     Dates: start: 20140520
  3. PREDONINE [Suspect]
     Active Substance: PREDNISOLONE
     Indication: MUSCULAR WEAKNESS
     Route: 048
     Dates: start: 20120420
  4. PROGRAF [Suspect]
     Active Substance: TACROLIMUS
     Indication: MUSCULAR WEAKNESS
     Route: 048
     Dates: start: 20130511
  5. ONEALFA [Concomitant]
     Active Substance: ALFACALCIDOL
     Indication: OSTEOPOROSIS PROPHYLAXIS
     Route: 048
     Dates: start: 20120501

REACTIONS (2)
  - Pneumatosis intestinalis [Recovered/Resolved]
  - Intussusception [Recovered/Resolved]

NARRATIVE: CASE EVENT DATE: 20200824
